FAERS Safety Report 12863193 (Version 2)
Quarter: 2016Q4

REPORT INFORMATION
  Report Type: Spontaneous
  Country: NL (occurrence: NL)
  Receive Date: 20161019
  Receipt Date: 20161020
  Transmission Date: 20170207
  Serious: Yes (Hospitalization)
  Sender: FDA-Public Use
  Company Number: NL-TEVA-701696ISR

PATIENT
  Age: 57 Year
  Sex: Female
  Weight: 85 kg

DRUGS (4)
  1. THYRAX DUO 0.150 MG [Interacting]
     Active Substance: LEVOTHYROXINE SODIUM
     Indication: PRODUCT USED FOR UNKNOWN INDICATION
     Dosage: .075 MILLIGRAM DAILY;
     Route: 048
     Dates: start: 20081120
  2. OMEPRAZOLE AURO GASTRO-RESISTANT CAPSULES 20MG [Suspect]
     Active Substance: OMEPRAZOLE
     Indication: PROPHYLAXIS
     Dosage: GASTRO-RESISTANT CAPSULE, HARD
     Dates: start: 20090306
  3. PRAVASTATIN TABLETS 40MG [Interacting]
     Active Substance: PRAVASTATIN
     Indication: BLOOD CHOLESTEROL INCREASED
     Dosage: 40 IU/KG
     Route: 048
     Dates: start: 20081120, end: 20081210
  4. FOSTER [Interacting]
     Active Substance: BECLOMETHASONE\FORMOTEROL
     Indication: ASTHMA
     Dosage: 4 DOSAGE FORMS DAILY;
     Route: 055
     Dates: start: 20090305

REACTIONS (3)
  - Dyspnoea [Recovered/Resolved with Sequelae]
  - Drug interaction [Recovered/Resolved with Sequelae]
  - Cardiac disorder [Recovered/Resolved with Sequelae]

NARRATIVE: CASE EVENT DATE: 20081202
